FAERS Safety Report 16361159 (Version 1)
Quarter: 2019Q3

REPORT INFORMATION
  Report Type: Spontaneous
  Country: US (occurrence: US)
  Receive Date: 20190524
  Receipt Date: 20190524
  Transmission Date: 20191004
  Serious: Yes (Hospitalization)
  Sender: FDA-Public Use
  Company Number: None

PATIENT
  Age: 66 Year
  Sex: Female
  Weight: 72 kg

DRUGS (2)
  1. CAPECITABINE. [Suspect]
     Active Substance: CAPECITABINE
     Indication: BREAST CANCER
     Dosage: ?          OTHER FREQUENCY:BID ON14 DAYS OFF7;?
     Route: 048
     Dates: start: 20190321, end: 20190520
  2. NERLYNX [Concomitant]
     Active Substance: NERATINIB
     Dates: start: 20190412, end: 20190520

REACTIONS (4)
  - Escherichia infection [None]
  - Urinary tract infection bacterial [None]
  - Confusional state [None]
  - Clostridium difficile infection [None]

NARRATIVE: CASE EVENT DATE: 20190513
